FAERS Safety Report 8053469-8 (Version None)
Quarter: 2012Q1

REPORT INFORMATION
  Report Type: 
  Country: None (occurrence: None)
  Receive Date: 20120118
  Receipt Date: 20111212
  Transmission Date: 20120608
  Serious: Yes (Hospitalization)
  Sender: FDA-Public Use
  Company Number: DE-GLAXOSMITHKLINE-D0073771A

PATIENT
  Sex: Female
  Weight: 83 kg

DRUGS (8)
  1. CEFUROXIME AXETIL [Suspect]
     Indication: URINARY TRACT INFECTION
     Dosage: 500MG TWICE PER DAY
     Route: 048
     Dates: start: 20110711
  2. CALCIUM [Concomitant]
     Indication: OSTEOPOROSIS
     Dosage: 1000MG IN THE MORNING
     Route: 048
     Dates: start: 20110101
  3. CETRIZIN [Concomitant]
     Route: 065
     Dates: start: 20110701
  4. AROMASIN [Concomitant]
     Indication: BREAST CANCER
     Dosage: 25MG PER DAY
     Route: 048
     Dates: start: 20090101
  5. ERGOCALCIFEROL [Concomitant]
     Dosage: 1000MG PER DAY
     Route: 065
     Dates: start: 20110101
  6. MOVIPREP [Concomitant]
     Route: 065
  7. PANTOZOL [Concomitant]
     Dosage: 40MG PER DAY
     Route: 065
  8. ADVANTAN [Concomitant]
     Route: 061
     Dates: start: 20110701

REACTIONS (10)
  - ILL-DEFINED DISORDER [None]
  - VIRAL INFECTION [None]
  - DERMATITIS ALLERGIC [None]
  - HEPATIC ENZYME INCREASED [None]
  - HEPATITIS [None]
  - HYPEREOSINOPHILIC SYNDROME [None]
  - HEPATIC STEATOSIS [None]
  - HODGKIN'S DISEASE [None]
  - CHRONIC HEPATITIS [None]
  - PIRIFORMIS SYNDROME [None]
